FAERS Safety Report 11246684 (Version 1)
Quarter: 2015Q3

REPORT INFORMATION
  Report Type: Spontaneous
  Country: US (occurrence: None)
  Receive Date: 20150706
  Receipt Date: 20150706
  Transmission Date: 20151125
  Serious: Yes (Hospitalization)
  Sender: FDA-Public Use
  Company Number: 2015-US-0178

PATIENT
  Age: 62 Year
  Sex: Male
  Weight: 83.46 kg

DRUGS (1)
  1. SANCUSO [Suspect]
     Active Substance: GRANISETRON
     Indication: PROPHYLAXIS OF NAUSEA AND VOMITING
     Dosage: 1 DOSAGE FORM X 1 PER 1 WEEK TRANSDERMAL
     Route: 062
     Dates: start: 20150609, end: 20150616

REACTIONS (3)
  - Leukopenia [None]
  - Product adhesion issue [None]
  - Febrile neutropenia [None]

NARRATIVE: CASE EVENT DATE: 201506
